FAERS Safety Report 8632632 (Version 2)
Quarter: 2012Q4

REPORT INFORMATION
  Report Type: 
  Country: JP (occurrence: JP)
  Receive Date: 20120625
  Receipt Date: 20121218
  Transmission Date: 20130627
  Serious: Yes (Death)
  Sender: FDA-Public Use
  Company Number: JP-ELI_LILLY_AND_COMPANY-JP201206004411

PATIENT
  Age: 41 Year
  Sex: Male

DRUGS (5)
  1. GEMZAR [Suspect]
     Indication: LUNG NEOPLASM MALIGNANT
     Dosage: 1590 mg, UNK
     Route: 042
  2. CISPLATIN [Concomitant]
     Indication: LUNG NEOPLASM MALIGNANT
     Dosage: 63 mg, UNK
  3. BENIDIPINE [Concomitant]
     Dosage: 4 mg, unknown
  4. RABEPRAZOLE SODIUM [Concomitant]
     Dosage: 10 mg, unknown
  5. L-CARBOCYSTEINE [Concomitant]
     Dosage: 1500 mg, unknown

REACTIONS (1)
  - Acute myocardial infarction [Fatal]
